FAERS Safety Report 18514105 (Version 1)
Quarter: 2020Q4

REPORT INFORMATION
  Report Type: Spontaneous
  Country: US (occurrence: US)
  Receive Date: 20201117
  Receipt Date: 20201117
  Transmission Date: 20210114
  Serious: No
  Sender: FDA-Public Use
  Company Number: US-NALPROPION PHARMACEUTICALS INC.-2019-008903

PATIENT
  Age: 40 Year
  Sex: Male
  Weight: 96.15 kg

DRUGS (1)
  1. CONTRAVE [Suspect]
     Active Substance: BUPROPION HYDROCHLORIDE\NALTREXONE HYDROCHLORIDE
     Indication: PRODUCT USED FOR UNKNOWN INDICATION
     Dosage: ONE TABLET DAILY FOR LESS THAN A WEEK
     Route: 048
     Dates: start: 201910, end: 20191027

REACTIONS (2)
  - Aggression [Unknown]
  - Feeling jittery [Unknown]

NARRATIVE: CASE EVENT DATE: 201910
